FAERS Safety Report 8853012 (Version 1)
Quarter: 2012Q4

REPORT INFORMATION
  Report Type: 
  Country: AU (occurrence: AU)
  Receive Date: 20121022
  Receipt Date: 20121022
  Transmission Date: 20130627
  Serious: Yes (Other)
  Sender: FDA-Public Use
  Company Number: AU-BAXTER-2012BAX019896

PATIENT
  Age: 0 Year

DRUGS (4)
  1. ANHYDROUS DEXTROSE [Suspect]
     Indication: PARENTERAL NUTRITION
     Route: 042
     Dates: start: 20121004
  2. AMINO ACIDS [Suspect]
     Indication: PARENTERAL NUTRITION
     Route: 042
     Dates: start: 20121004
  3. UNSPECIFIED INGREDIENT [Suspect]
     Indication: PARENTERAL NUTRITION
     Route: 042
     Dates: start: 20121004
  4. TPN                                /06443901/ [Concomitant]
     Indication: PARENTERAL NUTRITION
     Route: 042
     Dates: start: 20121004

REACTIONS (1)
  - Blood glucose increased [Unknown]
